FAERS Safety Report 4608046-5 (Version None)
Quarter: 2005Q2

REPORT INFORMATION
  Report Type: 
  Country: None (occurrence: None)
  Receive Date: 20050303
  Receipt Date: 20041122
  Transmission Date: 20051028
  Serious: No
  Sender: FDA-Public Use
  Company Number: 210619

PATIENT
  Age: 74 Year
  Sex: Male
  Weight: 99 kg

DRUGS (7)
  1. XOLAIR [Suspect]
     Indication: ASTHMA
     Dosage: 375 MG, QW2, SUBCUTANEOUS
     Route: 058
     Dates: start: 20041028
  2. ALBUTEROL NEBULIZER (ALBUTEROL SULFATE, ALBUTEROL) [Concomitant]
  3. ADVAIR DISKUS (FLUTICASONE PROPIONATE, SALMTEROL XINAFOATE) [Concomitant]
  4. FLONASE [Concomitant]
  5. ZESTRIL [Concomitant]
  6. LASIX [Concomitant]
  7. LIPITOR [Concomitant]

REACTIONS (1)
  - PARAESTHESIA ORAL [None]
